FAERS Safety Report 4650369-8 (Version None)
Quarter: 2005Q2

REPORT INFORMATION
  Report Type: 
  Country: None (occurrence: None)
  Receive Date: 20050429
  Receipt Date: 20050419
  Transmission Date: 20051028
  Serious: Yes (Death, Hospitalization)
  Sender: FDA-Public Use
  Company Number: 2005UW04367

PATIENT
  Age: 72 Year
  Sex: Male

DRUGS (16)
  1. DOCETAXEL [Suspect]
     Indication: NON-SMALL CELL LUNG CANCER
     Dosage: 158 MG/M2 Q3WK IV
     Route: 042
     Dates: start: 20050210
  2. DOCETAXEL [Suspect]
     Indication: NON-SMALL CELL LUNG CANCER
     Dosage: 158 MG/M2 Q3WK IV
     Route: 042
     Dates: start: 20050302
  3. TAXOL [Concomitant]
  4. ZOPICLONE [Concomitant]
  5. DURAGESIC-100 [Concomitant]
  6. METOPROLOL [Concomitant]
  7. DILTIAZEM [Concomitant]
  8. MINOCYCLINE HCL [Concomitant]
  9. WARFARIN [Concomitant]
  10. BETNOVATE [Concomitant]
  11. SENOKOT [Concomitant]
  12. MEGACE [Concomitant]
  13. OXYCODONE HCL [Concomitant]
  14. LOSEC [Concomitant]
  15. DEXAMETHASONE [Concomitant]
  16. EFFEXOR XR [Concomitant]

REACTIONS (7)
  - AGITATION [None]
  - BRONCHOSPASM [None]
  - HYPOXIA [None]
  - NAUSEA [None]
  - PAIN [None]
  - PNEUMONIA [None]
  - THERAPY NON-RESPONDER [None]
